FAERS Safety Report 21974030 (Version 1)
Quarter: 2023Q1

REPORT INFORMATION
  Report Type: Spontaneous
  Country: FR (occurrence: FR)
  Receive Date: 20230209
  Receipt Date: 20230209
  Transmission Date: 20230417
  Serious: Yes (Hospitalization)
  Sender: FDA-Public Use
  Company Number: None

PATIENT
  Age: 84 Year
  Sex: Female

DRUGS (2)
  1. CEFEPIME [Suspect]
     Active Substance: CEFEPIME HYDROCHLORIDE
     Indication: Arthritis infective
     Dosage: 2 GRAM, Q8H
     Route: 042
     Dates: start: 20221226, end: 20221230
  2. LINEZOLID [Suspect]
     Active Substance: LINEZOLID
     Indication: Arthritis infective
     Dosage: 600 MILLIGRAM, BID
     Route: 048
     Dates: start: 20221226, end: 20221230

REACTIONS (1)
  - Encephalopathy [Not Recovered/Not Resolved]

NARRATIVE: CASE EVENT DATE: 20221231
